FAERS Safety Report 8761164 (Version 3)
Quarter: 2013Q1

REPORT INFORMATION
  Report Type: Report from Study
  Country: US (occurrence: US)
  Receive Date: 20120830
  Receipt Date: 20130307
  Transmission Date: 20140127
  Serious: Yes (Hospitalization)
  Sender: FDA-Public Use
  Company Number: US-JNJFOC-20120812209

PATIENT
  Age: 62 Year
  Sex: Female
  Weight: 89.36 kg

DRUGS (2)
  1. USTEKINUMAB [Suspect]
     Indication: PSORIASIS
     Route: 058
     Dates: start: 201002
  2. CORTICOSTEROIDS [Concomitant]

REACTIONS (2)
  - Dehydration [Recovered/Resolved]
  - Presyncope [Recovered/Resolved]
